FAERS Safety Report 5705964-1 (Version None)
Quarter: 2008Q2

REPORT INFORMATION
  Report Type: 
  Country: None (occurrence: None)
  Receive Date: 20080411
  Receipt Date: 20080402
  Transmission Date: 20081010
  Serious: Yes (Death, Other)
  Sender: FDA-Public Use
  Company Number: 167-20785-08040338

PATIENT

DRUGS (3)
  1. THALOMID [Suspect]
     Indication: SMALL CELL LUNG CANCER STAGE UNSPECIFIED
     Dosage: 100 MG, DAILY, ORAL
     Route: 048
  2. ETOPOSIDE [Suspect]
     Indication: SMALL CELL LUNG CANCER STAGE UNSPECIFIED
     Dosage: 120 MG/M2, DAY, 1, INTRAVENOUS; 100 MG TWICE DAILY ON DAYS 2 AND 3, ORAL
     Route: 042
  3. CARBOPLATIN [Suspect]
     Indication: SMALL CELL LUNG CANCER STAGE UNSPECIFIED
     Dosage: AUC 5, DAY 1, REPEATED 3-WEEK FOR 6 CYCLES, INTRAVENOUS
     Route: 042

REACTIONS (15)
  - ALOPECIA [None]
  - ANAEMIA [None]
  - ANOREXIA [None]
  - DISEASE PROGRESSION [None]
  - DIVERTICULAR PERFORATION [None]
  - HAEMATOTOXICITY [None]
  - LUNG NEOPLASM MALIGNANT [None]
  - NAUSEA [None]
  - NEUROPATHY PERIPHERAL [None]
  - NEUTROPENIA [None]
  - RASH PRURITIC [None]
  - REFUSAL OF TREATMENT BY PATIENT [None]
  - SOMNOLENCE [None]
  - THROMBOCYTOPENIA [None]
  - WHITE BLOOD CELL COUNT DECREASED [None]
